FAERS Safety Report 10371290 (Version 2)
Quarter: 2015Q3

REPORT INFORMATION
  Report Type: Report from Study
  Country: US (occurrence: US)
  Receive Date: 20140808
  Receipt Date: 20150804
  Transmission Date: 20151125
  Serious: Yes (Death, Other)
  Sender: FDA-Public Use
  Company Number: US-GILEAD-2014-0111340

PATIENT
  Age: 9 Year
  Sex: Female

DRUGS (4)
  1. AMBRISENTAN [Suspect]
     Active Substance: AMBRISENTAN
     Indication: AUTOIMMUNE DISORDER
  2. ADCIRCA [Concomitant]
     Active Substance: TADALAFIL
  3. AMBRISENTAN [Suspect]
     Active Substance: AMBRISENTAN
     Indication: PULMONARY HYPERTENSION
     Dosage: 5 MG, QD
     Route: 065
     Dates: start: 20130815, end: 20140723
  4. AMBRISENTAN [Suspect]
     Active Substance: AMBRISENTAN
     Indication: HISTIOCYTOSIS HAEMATOPHAGIC

REACTIONS (2)
  - Death [Fatal]
  - Treatment noncompliance [Unknown]

NARRATIVE: CASE EVENT DATE: 20140723
